FAERS Safety Report 23254191 (Version 2)
Quarter: 2024Q1

REPORT INFORMATION
  Report Type: Spontaneous
  Country: CH (occurrence: CH)
  Receive Date: 20231202
  Receipt Date: 20240106
  Transmission Date: 20240410
  Serious: Yes (Other)
  Sender: FDA-Public Use
  Company Number: None

PATIENT
  Age: 67 Year
  Weight: 90 kg

DRUGS (5)
  1. PACLITAXEL [Suspect]
     Active Substance: PACLITAXEL
     Indication: Ovarian epithelial cancer
     Dosage: CYCLE 1 DAY 1; INTRAVENOUS DRIP; ONLY A SMALL PORTION OF 80 MG/M2 IS PASSED INTO IV
     Route: 042
     Dates: start: 20231020, end: 20231020
  2. CLEMASTINE [Concomitant]
     Active Substance: CLEMASTINE
     Indication: Chemotherapy side effect prophylaxis
     Dosage: 2 MG
     Route: 042
     Dates: start: 20231020
  3. CIMETIDINE [Concomitant]
     Active Substance: CIMETIDINE
     Indication: Chemotherapy side effect prophylaxis
     Dosage: 400 MG AT 10H 00
     Route: 042
     Dates: start: 20231020
  4. DEXAMETHASONE [Concomitant]
     Active Substance: DEXAMETHASONE
     Indication: Chemotherapy side effect prophylaxis
     Dosage: 12 MG AT 10H 25
     Route: 042
     Dates: start: 20231020
  5. PALONOSETRON HYDROCHLORIDE [Concomitant]
     Active Substance: PALONOSETRON HYDROCHLORIDE
     Indication: Chemotherapy side effect prophylaxis
     Dosage: 0.25 MG
     Route: 042
     Dates: start: 20231020

REACTIONS (1)
  - Loss of consciousness [Recovered/Resolved]

NARRATIVE: CASE EVENT DATE: 20231020
